FAERS Safety Report 20672970 (Version 3)
Quarter: 2023Q2

REPORT INFORMATION
  Report Type: Spontaneous
  Country: ML (occurrence: ML)
  Receive Date: 20220405
  Receipt Date: 20230601
  Transmission Date: 20230721
  Serious: Yes (Other)
  Sender: FDA-Public Use
  Company Number: ML-STRIDES ARCOLAB LIMITED-2022SP003350

PATIENT
  Age: 0 Year
  Sex: Female

DRUGS (6)
  1. TENOFOVIR DISOPROXIL FUMARATE [Suspect]
     Active Substance: TENOFOVIR DISOPROXIL FUMARATE
     Indication: Product used for unknown indication
     Dosage: UNK; (PATIENT MOTHER RECEIVED TENOFOVIR DISOPROXIL FUMARATE 300 DAILY DOSE)
     Route: 064
  2. LAMIVUDINE [Suspect]
     Active Substance: LAMIVUDINE
     Indication: Product used for unknown indication
     Dosage: UNK; (PATIENT MOTHER RECEIVED LAMIVUDINE 300 DAILY DOSE)
     Route: 064
  3. LOPINAVIR\RITONAVIR [Suspect]
     Active Substance: LOPINAVIR\RITONAVIR
     Indication: Product used for unknown indication
     Dosage: UNK; (PATIENT MOTHER RECEIVED LOPINAVIR;RITONAVIR 500 DAILY DOSE)
     Route: 064
  4. DARUNAVIR [Suspect]
     Active Substance: DARUNAVIR
     Indication: Product used for unknown indication
     Dosage: UNK; (PATIENT MOTHER RECEIVED DARUNAVIR 800 DAILY DOSE)
     Route: 064
  5. DOLUTEGRAVIR [Suspect]
     Active Substance: DOLUTEGRAVIR
     Indication: Product used for unknown indication
     Dosage: UNK; (PATIENT MOTHER RECEIVED DOLUTEGRAVIR 50 DAILY DOSE)
     Route: 064
  6. RITONAVIR [Suspect]
     Active Substance: RITONAVIR
     Indication: Product used for unknown indication
     Dosage: UNK; (PATIENT MOTHER RECEIVED RITONAVIR 100 DAILY DOSE)
     Route: 064

REACTIONS (3)
  - Premature baby [Unknown]
  - Low birth weight baby [Unknown]
  - Foetal exposure during pregnancy [Unknown]

NARRATIVE: CASE EVENT DATE: 20210930
